FAERS Safety Report 7216473-5 (Version None)
Quarter: 2011Q1

REPORT INFORMATION
  Report Type: 
  Country: None (occurrence: None)
  Receive Date: 20110107
  Receipt Date: 20110105
  Transmission Date: 20110831
  Serious: Yes (Hospitalization)
  Sender: FDA-Public Use
  Company Number: JP-ABBOTT-10P-087-0683897-00

PATIENT
  Sex: Male
  Weight: 12.5 kg

DRUGS (5)
  1. ASVERIN [Concomitant]
     Indication: PRODUCT USED FOR UNKNOWN INDICATION
     Route: 048
     Dates: start: 20101101
  2. MEPTIN [Concomitant]
     Indication: PRODUCT USED FOR UNKNOWN INDICATION
     Route: 048
     Dates: start: 20101101
  3. ANTIBIOTICS-RESISTANT LACTIC ACID BACTERIAE (LACB-R POW) [Concomitant]
     Indication: PRODUCT USED FOR UNKNOWN INDICATION
     Dates: start: 20101101
  4. KLARICID DRY SYRUP [Suspect]
     Indication: BRONCHOPNEUMONIA
     Route: 048
     Dates: start: 20101101, end: 20101102
  5. MUCODYNE [Concomitant]
     Indication: PRODUCT USED FOR UNKNOWN INDICATION
     Route: 048
     Dates: start: 20101101

REACTIONS (3)
  - VOMITING [None]
  - HYPOTHERMIA [None]
  - PALLOR [None]
